FAERS Safety Report 16393378 (Version 1)
Quarter: 2019Q2

REPORT INFORMATION
  Report Type: Spontaneous
  Country: IT (occurrence: IT)
  Receive Date: 20190605
  Receipt Date: 20190605
  Transmission Date: 20190711
  Serious: Yes (Other)
  Sender: FDA-Public Use
  Company Number: IT-PFIZER INC-2019237535

PATIENT
  Sex: Male

DRUGS (3)
  1. OXCARBAZEPINE. [Concomitant]
     Active Substance: OXCARBAZEPINE
     Indication: EPILEPSY
     Dosage: UNK
     Dates: start: 2006, end: 20190508
  2. DINTOINA [Concomitant]
     Active Substance: PHENYTOIN SODIUM
     Indication: EPILEPSY
     Dosage: UNK
     Dates: start: 2006, end: 20180404
  3. LEVETIRACETAM. [Suspect]
     Active Substance: LEVETIRACETAM
     Indication: EPILEPSY
     Dosage: 1500 MG, DAILY
     Dates: start: 2006, end: 2018

REACTIONS (2)
  - Thyroid cancer [Recovered/Resolved]
  - Arachnoid cyst [Not Recovered/Not Resolved]

NARRATIVE: CASE EVENT DATE: 2015
